FAERS Safety Report 6619321-7 (Version None)
Quarter: 2010Q1

REPORT INFORMATION
  Report Type: 
  Country: None (occurrence: None)
  Receive Date: 20100303
  Receipt Date: 20100216
  Transmission Date: 20100710
  Serious: Yes (Hospitalization)
  Sender: FDA-Public Use
  Company Number: 2010000563

PATIENT
  Age: 63 Year
  Sex: Male

DRUGS (9)
  1. ERLOTINIB HYDROCHLORIDE [Suspect]
     Indication: LUNG NEOPLASM MALIGNANT
     Dosage: ORAL
     Route: 048
     Dates: start: 20091008, end: 20100211
  2. CARBOPLATIN [Suspect]
     Indication: LUNG NEOPLASM MALIGNANT
     Dosage: 400 MG, INTRAVENOUS
     Route: 042
     Dates: start: 20090924, end: 20100202
  3. GEMCITABINE [Suspect]
     Indication: LUNG NEOPLASM MALIGNANT
     Dosage: 1.6 GM, INTRAVENOUS
     Route: 042
     Dates: start: 20090924, end: 20100202
  4. MULTIVITAMIN NOS [Concomitant]
  5. FERROUS SULFATE TAB [Concomitant]
  6. DOXOFYLLINE (DOXOFYLLINE) [Concomitant]
  7. IPRATROPIUM BROMIDE [Concomitant]
  8. SALBUTAMOL (SALBUTAMOL) [Concomitant]
  9. TRANEXAMIC ACID (TRANEXAMIC ACID) [Concomitant]

REACTIONS (18)
  - ACTIVATED PARTIAL THROMBOPLASTIN TIME PROLONGED [None]
  - ALPHA HAEMOLYTIC STREPTOCOCCAL INFECTION [None]
  - ANAEMIA [None]
  - BLOOD ALBUMIN DECREASED [None]
  - BREATH SOUNDS ABNORMAL [None]
  - DECREASED APPETITE [None]
  - EPISTAXIS [None]
  - FEBRILE NEUTROPENIA [None]
  - LYMPHADENOPATHY [None]
  - PETECHIAE [None]
  - PHARYNGEAL DISORDER [None]
  - PNEUMONIA [None]
  - PRODUCTIVE COUGH [None]
  - PROTEIN TOTAL INCREASED [None]
  - RED BLOOD CELLS URINE POSITIVE [None]
  - SPUTUM CULTURE POSITIVE [None]
  - THROMBOCYTOPENIA [None]
  - TONSILLAR DISORDER [None]
